FAERS Safety Report 7486344-8 (Version None)
Quarter: 2011Q2

REPORT INFORMATION
  Report Type: 
  Country: None (occurrence: None)
  Receive Date: 20110517
  Receipt Date: 20110512
  Transmission Date: 20111010
  Serious: Yes (Hospitalization)
  Sender: FDA-Public Use
  Company Number: US-ABBOTT-11P-163-0725172-00

PATIENT
  Sex: Female
  Weight: 54.48 kg

DRUGS (3)
  1. ADDERALL 10 [Concomitant]
     Indication: DISTURBANCE IN ATTENTION
     Route: 048
  2. DEPO-PROVERA [Concomitant]
     Indication: CONTRACEPTION
     Route: 030
     Dates: start: 20110401, end: 20110401
  3. HUMIRA [Suspect]
     Indication: AUTOSOMAL CHROMOSOME ANOMALY
     Dates: start: 20050101, end: 20110501

REACTIONS (1)
  - MULTIPLE SCLEROSIS [None]
